FAERS Safety Report 13578312 (Version 1)
Quarter: 2017Q2

REPORT INFORMATION
  Report Type: Spontaneous
  Country: US (occurrence: US)
  Receive Date: 20170524
  Receipt Date: 20170524
  Transmission Date: 20170830
  Serious: Yes (Hospitalization, Other)
  Sender: FDA-Public Use
  Company Number: US-TEVA-771482USA

PATIENT
  Age: 42 Year
  Sex: Male
  Weight: 76.09 kg

DRUGS (7)
  1. DELAMANID [Suspect]
     Active Substance: DELAMANID
     Dosage: 200 MILLIGRAM DAILY;
     Route: 048
     Dates: start: 20160906
  2. LINEZOLID. [Suspect]
     Active Substance: LINEZOLID
     Dosage: 600 MILLIGRAM DAILY;
     Route: 048
     Dates: start: 20160906, end: 20161101
  3. LEVOFLOXACIN. [Concomitant]
     Active Substance: LEVOFLOXACIN
     Indication: TUBERCULOSIS
     Dates: start: 20160906
  4. URSA [Concomitant]
     Dates: start: 20160913
  5. LINEZOLID. [Suspect]
     Active Substance: LINEZOLID
     Dosage: 300 MILLIGRAM DAILY;
     Route: 048
     Dates: start: 20161102
  6. PYRAZINAMIDE. [Concomitant]
     Active Substance: PYRAZINAMIDE
     Indication: TUBERCULOSIS
     Dates: start: 20160906
  7. GODEX [Concomitant]
     Indication: PROPHYLAXIS

REACTIONS (1)
  - Computerised tomogram abnormal [Not Recovered/Not Resolved]

NARRATIVE: CASE EVENT DATE: 20170330
